FAERS Safety Report 21900847 (Version 1)
Quarter: 2023Q1

REPORT INFORMATION
  Report Type: Spontaneous
  Country: PL (occurrence: PL)
  Receive Date: 20230123
  Receipt Date: 20230123
  Transmission Date: 20230418
  Serious: Yes (Life-Threatening, Other)
  Sender: FDA-Public Use
  Company Number: None

PATIENT
  Age: 24 Year
  Sex: Female
  Weight: 56 kg

DRUGS (1)
  1. ALPRAZOLAM [Interacting]
     Active Substance: ALPRAZOLAM
     Indication: Bipolar disorder
     Dosage: UNK
     Route: 048
     Dates: start: 20210213, end: 20210214

REACTIONS (6)
  - Depressed mood [Recovering/Resolving]
  - Somnolence [Recovering/Resolving]
  - Alcohol interaction [Recovering/Resolving]
  - Memory impairment [Recovering/Resolving]
  - Intentional overdose [Recovering/Resolving]
  - Drug abuse [Unknown]
